FAERS Safety Report 6858048-3 (Version None)
Quarter: 2010Q3

REPORT INFORMATION
  Report Type: 
  Country: None (occurrence: None)
  Receive Date: 20100719
  Receipt Date: 20080411
  Transmission Date: 20110219
  Serious: No
  Sender: FDA-Public Use
  Company Number: US-PFIZER INC-2008009549

PATIENT
  Sex: Female
  Weight: 52.2 kg

DRUGS (2)
  1. CHANTIX [Suspect]
     Indication: SMOKING CESSATION THERAPY
     Route: 048
     Dates: start: 20071001, end: 20080301
  2. VITAMINS [Concomitant]

REACTIONS (8)
  - APHTHOUS STOMATITIS [None]
  - DYSGEUSIA [None]
  - GINGIVAL BLEEDING [None]
  - GINGIVAL ERYTHEMA [None]
  - GINGIVITIS [None]
  - MUSCULOSKELETAL PAIN [None]
  - NAUSEA [None]
  - OROPHARYNGEAL BLISTERING [None]
